FAERS Safety Report 5458590-6 (Version None)
Quarter: 2007Q3

REPORT INFORMATION
  Report Type: 
  Country: None (occurrence: None)
  Receive Date: 20070919
  Receipt Date: 20070917
  Transmission Date: 20080115
  Serious: Yes (Other)
  Sender: FDA-Public Use
  Company Number: HK-BRISTOL-MYERS SQUIBB COMPANY-13911060

PATIENT
  Age: 1 Year
  Sex: Male

DRUGS (4)
  1. CARMUSTINE [Suspect]
     Dosage: DAY 1 EVERY OTHER MONTH.
     Route: 064
  2. CISPLATIN [Suspect]
     Dosage: ON DAYS 1-3
     Route: 064
  3. TAMOXIFEN CITRATE [Suspect]
     Route: 064
  4. DACARBAZINE [Suspect]
     Dosage: ON DAYS 1-3
     Route: 064

REACTIONS (3)
  - HYPERMETROPIA [None]
  - MICROPHTHALMOS [None]
  - PREGNANCY [None]
